FAERS Safety Report 10082718 (Version 1)
Quarter: 2014Q2

REPORT INFORMATION
  Report Type: Spontaneous
  Country: US (occurrence: US)
  Receive Date: 20140416
  Receipt Date: 20140416
  Transmission Date: 20141212
  Serious: Yes (Other)
  Sender: FDA-Public Use
  Company Number: US-FRI-1000066273

PATIENT
  Age: 48 Year
  Sex: Female

DRUGS (4)
  1. FETZIMA [Suspect]
     Indication: DEPRESSION
     Dosage: 20MG
  2. CYMBALTA [Suspect]
     Dosage: 60MG
  3. LYRICA [Concomitant]
     Dosage: 150 BID (UNKNOWN UNIT)
  4. HYDROCODONE [Concomitant]
     Dosage: 10/325 THREE TIMES DAILY (UNKNOWN UNIT)

REACTIONS (5)
  - Urinary tract infection [Unknown]
  - Headache [Unknown]
  - Vomiting [Unknown]
  - Myalgia [Unknown]
  - Swelling [Unknown]
